FAERS Safety Report 21772210 (Version 1)
Quarter: 2022Q4

REPORT INFORMATION
  Report Type: Report from Study
  Country: US (occurrence: US)
  Receive Date: 20221223
  Receipt Date: 20221223
  Transmission Date: 20230113
  Serious: No
  Sender: FDA-Public Use
  Company Number: US-ABBVIE-4208855

PATIENT
  Sex: Female

DRUGS (1)
  1. HUMIRA [Suspect]
     Active Substance: ADALIMUMAB
     Indication: Product used for unknown indication
     Route: 058
     Dates: end: 202209

REACTIONS (7)
  - Diarrhoea [Unknown]
  - Fungal infection [Unknown]
  - Madarosis [Not Recovered/Not Resolved]
  - Immobile [Not Recovered/Not Resolved]
  - Respiratory tract infection [Unknown]
  - Face injury [Unknown]
  - Skin atrophy [Unknown]
